FAERS Safety Report 8880316 (Version 1)
Quarter: 2012Q4

REPORT INFORMATION
  Report Type: 
  Country: BR (occurrence: BR)
  Receive Date: 20121031
  Receipt Date: 20121031
  Transmission Date: 20130627
  Serious: Yes (Other)
  Sender: FDA-Public Use
  Company Number: BR-009507513-1210BRA012301

PATIENT
  Sex: Male
  Weight: 80 kg

DRUGS (4)
  1. ZETSIM [Suspect]
     Indication: BLOOD CHOLESTEROL
     Dosage: UNK, qd
     Dates: start: 201209
  2. LACTULONA [Concomitant]
     Indication: CONSTIPATION
     Dosage: 10 ml, prn
  3. RIVOTRIL [Concomitant]
     Indication: ANXIETY
     Dosage: UNK
  4. DIGEPLUS [Concomitant]
     Indication: DYSPEPSIA
     Dosage: UNK, bid
     Route: 048

REACTIONS (2)
  - Hypertensive crisis [Recovered/Resolved]
  - Heart rate increased [Recovered/Resolved]
